FAERS Safety Report 8119447-5 (Version None)
Quarter: 2012Q1

REPORT INFORMATION
  Report Type: 
  Country: None (occurrence: None)
  Receive Date: 20120207
  Receipt Date: 20120131
  Transmission Date: 20120608
  Serious: Yes (Hospitalization)
  Sender: FDA-Public Use
  Company Number: US-JNJFOC-20120201030

PATIENT
  Age: 50 Year
  Sex: Male

DRUGS (10)
  1. BENADRYL [Concomitant]
     Dosage: AS NECESSARY
     Route: 048
  2. BENZTROPINE MESYLATE [Concomitant]
     Route: 065
  3. DOXYCYCLINE [Concomitant]
     Route: 048
     Dates: start: 20120127
  4. CLOTRIMAZOLE [Concomitant]
     Route: 065
  5. FUROSEMIDE [Concomitant]
     Route: 048
  6. CLINDAMYCIN [Concomitant]
     Route: 048
     Dates: start: 20110105, end: 20120112
  7. ATENOLOL [Concomitant]
     Route: 065
  8. DIVALPROEX SODIUM [Concomitant]
     Dosage: AT BED TIME
     Route: 048
  9. MOXIFLOXACIN [Concomitant]
     Route: 048
     Dates: start: 20120130
  10. INVEGA SUSTENNA [Suspect]
     Indication: SCHIZOAFFECTIVE DISORDER
     Route: 030

REACTIONS (3)
  - PULMONARY EMBOLISM [None]
  - URINARY TRACT INFECTION [None]
  - ABSCESS [None]
